FAERS Safety Report 6615955-4 (Version None)
Quarter: 2010Q1

REPORT INFORMATION
  Report Type: 
  Country: None (occurrence: None)
  Receive Date: 20100305
  Receipt Date: 20100301
  Transmission Date: 20100710
  Serious: Yes (Other)
  Sender: FDA-Public Use
  Company Number: A0847349A

PATIENT
  Age: 67 Year
  Sex: Male

DRUGS (13)
  1. AVANDIA [Suspect]
     Dosage: 4MG PER DAY
     Route: 048
     Dates: start: 20050101
  2. AMLODIPINE [Concomitant]
  3. ECOTRIN [Concomitant]
  4. METOPROLOL [Concomitant]
  5. PLAVIX [Concomitant]
  6. ISOSORBIDE [Concomitant]
  7. UNSPECIFIED MEDICATION [Concomitant]
  8. GLIMEPIRIDE [Concomitant]
  9. TRICOR [Concomitant]
  10. UNSPECIFIED MEDICATION [Concomitant]
  11. ZINC [Concomitant]
  12. LIPITOR [Concomitant]
  13. TERAZOSIN HCL [Concomitant]

REACTIONS (4)
  - ACUTE MYOCARDIAL INFARCTION [None]
  - BLOOD GLUCOSE DECREASED [None]
  - PNEUMONIA [None]
  - WEIGHT DECREASED [None]
